FAERS Safety Report 7392811 (Version 2)
Quarter: 2014Q2

REPORT INFORMATION
  Report Type: Spontaneous
  Country: FR (occurrence: FR)
  Receive Date: 20100519
  Receipt Date: 20140527
  Transmission Date: 20141212
  Serious: Yes (Hospitalization)
  Sender: FDA-Public Use
  Company Number: FR-ASTRAZENECA-2010SE21570

PATIENT
  Age: 963 Month
  Sex: Male

DRUGS (11)
  1. INEXIUM [Suspect]
     Route: 048
     Dates: start: 200909, end: 20100322
  2. TRIATEC [Suspect]
     Route: 048
     Dates: start: 201001, end: 201002
  3. TRIATEC [Suspect]
     Dosage: GENERIC DRUG
     Route: 048
     Dates: start: 201002, end: 20100320
  4. TRIATEC [Suspect]
     Route: 048
     Dates: start: 20100320, end: 20100322
  5. CRESTOR [Suspect]
     Route: 048
     Dates: start: 201001, end: 20100322
  6. PREVISCAN [Suspect]
     Indication: ARRHYTHMIA SUPRAVENTRICULAR
     Route: 065
     Dates: start: 200910, end: 20100320
  7. CORDARONE [Suspect]
     Route: 065
     Dates: start: 200910, end: 20100322
  8. CARDENSIEL [Suspect]
     Dates: start: 200910
  9. OMACOR [Suspect]
     Route: 048
     Dates: start: 201001, end: 20100322
  10. KARDEGIC [Suspect]
     Route: 048
     Dates: start: 200911, end: 20100322
  11. TARDYFERON [Suspect]
     Route: 048
     Dates: start: 201001, end: 20100322

REACTIONS (1)
  - Vascular purpura [Not Recovered/Not Resolved]
